FAERS Safety Report 10224889 (Version 1)
Quarter: 2014Q2

REPORT INFORMATION
  Report Type: Spontaneous
  Country: GB (occurrence: GB)
  Receive Date: 20140609
  Receipt Date: 20140609
  Transmission Date: 20141212
  Serious: Yes (Life-Threatening)
  Sender: FDA-Public Use
  Company Number: GB-ABBVIE-14K-167-1245565-00

PATIENT
  Age: 53 Year
  Sex: Male
  Weight: 85.8 kg

DRUGS (6)
  1. NORVIR [Suspect]
     Indication: HIV INFECTION
     Route: 048
  2. SERETIDE [Interacting]
     Indication: ASTHMA
     Route: 055
     Dates: start: 201307, end: 20140428
  3. ADCAL D3 [Concomitant]
     Indication: OSTEOPOROSIS
     Route: 048
  4. TRUVADA [Concomitant]
     Indication: HIV INFECTION
     Route: 048
  5. ATAZANAVIR [Concomitant]
     Indication: HIV INFECTION
     Route: 048
  6. VARDENAFIL [Concomitant]
     Indication: ERECTILE DYSFUNCTION
     Route: 048

REACTIONS (4)
  - Drug level increased [Recovering/Resolving]
  - Drug interaction [Unknown]
  - Cushingoid [Not Recovered/Not Resolved]
  - Blood cortisol decreased [Unknown]
